FAERS Safety Report 6756344-1 (Version None)
Quarter: 2010Q2

REPORT INFORMATION
  Report Type: 
  Country: None (occurrence: None)
  Receive Date: 20100604
  Receipt Date: 20100601
  Transmission Date: 20101027
  Serious: Yes (Hospitalization)
  Sender: FDA-Public Use
  Company Number: US-BAYER-201015663NA

PATIENT
  Age: 69 Year
  Sex: Female

DRUGS (3)
  1. NEXAVAR [Suspect]
     Indication: BREAST CANCER
     Dosage: TOTAL DAILY DOSE: 400 MG  UNIT DOSE: 200 MG
     Route: 048
     Dates: start: 20100304
  2. NEXAVAR [Suspect]
     Dosage: TOTAL DAILY DOSE: 800 MG  UNIT DOSE: 200 MG
     Route: 048
     Dates: start: 20100210, end: 20100226
  3. MOISTURIZING CREAMS [Concomitant]

REACTIONS (13)
  - ALOPECIA [None]
  - BLISTER [None]
  - BLISTER INFECTED [None]
  - BLOOD GLUCOSE FLUCTUATION [None]
  - CELLULITIS [None]
  - ERYTHEMA [None]
  - HYPERAESTHESIA [None]
  - HYPERKERATOSIS [None]
  - PAIN IN EXTREMITY [None]
  - PALMAR-PLANTAR ERYTHRODYSAESTHESIA SYNDROME [None]
  - PRURITUS [None]
  - PYREXIA [None]
  - RASH VESICULAR [None]
